FAERS Safety Report 26068908 (Version 1)
Quarter: 2025Q4

REPORT INFORMATION
  Report Type: Spontaneous
  Country: US (occurrence: US)
  Receive Date: 20251120
  Receipt Date: 20251120
  Transmission Date: 20260117
  Serious: No
  Sender: MSN LABORATORIES PRIVATE LIMITED
  Company Number: US-MSNLABS-2025MSNSPO03332

PATIENT

DRUGS (6)
  1. PREGABALIN [Suspect]
     Active Substance: PREGABALIN
     Indication: Sciatica
     Dosage: USUALLY TAKES TWO CAPSULES A DAY AND OCCASIONALLY THREE ON WEEKENDS WHEN HER LEG PAIN WORSENS
     Route: 048
     Dates: start: 20251015
  2. PREGABALIN [Suspect]
     Active Substance: PREGABALIN
     Indication: Pain in extremity
  3. PREGABALIN [Suspect]
     Active Substance: PREGABALIN
     Indication: Burning sensation
  4. METFORMIN [Concomitant]
     Active Substance: METFORMIN HYDROCHLORIDE
     Indication: Diabetes mellitus
     Route: 065
  5. CRESTOR [Concomitant]
     Active Substance: ROSUVASTATIN CALCIUM
     Indication: Blood cholesterol
     Route: 065
  6. ASPIRIN [Concomitant]
     Active Substance: ASPIRIN
     Indication: Product used for unknown indication
     Route: 065

REACTIONS (7)
  - Decreased appetite [Unknown]
  - Product dose omission issue [Unknown]
  - Discomfort [Unknown]
  - Product packaging quantity issue [Unknown]
  - Nausea [Recovered/Resolved]
  - Drug withdrawal headache [Unknown]
  - Withdrawal syndrome [Unknown]
